FAERS Safety Report 8708814 (Version 3)
Quarter: 2012Q4

REPORT INFORMATION
  Report Type: 
  Country: JP (occurrence: JP)
  Receive Date: 20120806
  Receipt Date: 20120830
  Transmission Date: 20130627
  Serious: Yes (Death, Other)
  Sender: FDA-Public Use
  Company Number: JP-ROCHE-1093361

PATIENT
  Age: 71 Year
  Sex: Female
  Weight: 55 kg

DRUGS (2)
  1. ROCEPHIN [Suspect]
     Indication: CYSTITIS
     Route: 042
     Dates: start: 20120706, end: 20120707
  2. ROCEPHIN [Suspect]
     Indication: CYSTITIS
     Route: 042
     Dates: start: 20120724, end: 20120724

REACTIONS (3)
  - Shock [Fatal]
  - Cardio-respiratory arrest [Fatal]
  - Septic shock [Unknown]
